FAERS Safety Report 15752712 (Version 1)
Quarter: 2018Q4

REPORT INFORMATION
  Report Type: Spontaneous
  Country: JP (occurrence: JP)
  Receive Date: 20181221
  Receipt Date: 20181221
  Transmission Date: 20190205
  Serious: Yes (Other)
  Sender: FDA-Public Use
  Company Number: JP-GLAXOSMITHKLINE-JP2018JPN227393

PATIENT
  Age: 10 Year
  Sex: Male

DRUGS (1)
  1. ZOVIRAX [Suspect]
     Active Substance: ACYCLOVIR
     Indication: HERPES ZOSTER
     Dosage: 600 MG, QID
     Route: 048

REACTIONS (3)
  - Dyspnoea [Unknown]
  - Anaphylactoid reaction [Unknown]
  - Therapy cessation [Unknown]
